FAERS Safety Report 9670243 (Version 2)
Quarter: 2013Q4

REPORT INFORMATION
  Report Type: Spontaneous
  Country: US (occurrence: US)
  Receive Date: 20131105
  Receipt Date: 20131113
  Transmission Date: 20140711
  Serious: Yes (Other)
  Sender: FDA-Public Use
  Company Number: CHPA2013US016619

PATIENT
  Age: 58 Year
  Sex: Male

DRUGS (3)
  1. TRIAMINIC MULTI-SYMPTOM FEVER [Suspect]
     Indication: INFECTION
     Dosage: 2.5 TSP, ONCE/SINGLE
     Route: 048
     Dates: start: 20131027
  2. TRIAMINIC MULTI-SYMPTOM FEVER [Suspect]
     Indication: OFF LABEL USE
  3. TRIAMINIC COLD + COUGH [Suspect]
     Indication: NASOPHARYNGITIS
     Dosage: UNK, UNK

REACTIONS (2)
  - Infection [Not Recovered/Not Resolved]
  - Somnolence [Recovered/Resolved]
